FAERS Safety Report 5118170-9 (Version None)
Quarter: 2006Q3

REPORT INFORMATION
  Report Type: 
  Country: None (occurrence: None)
  Receive Date: 20060926
  Receipt Date: 20060913
  Transmission Date: 20061208
  Serious: Yes (Other)
  Sender: FDA-Public Use
  Company Number: 2006112306

PATIENT
  Sex: Male

DRUGS (4)
  1. SILDENAFIL CITRATE [Suspect]
     Indication: PULMONARY HYPERTENSION
     Dosage: 25 MG (25 MG), ORAL
     Route: 048
     Dates: start: 20060907, end: 20060907
  2. TRACLEER [Concomitant]
  3. ACARDI     (PIMOBENDAN) [Concomitant]
  4. WARFARIN SODIUM [Concomitant]

REACTIONS (1)
  - LEFT VENTRICULAR FAILURE [None]
